FAERS Safety Report 4916824-8 (Version None)
Quarter: 2006Q1

REPORT INFORMATION
  Report Type: 
  Country: None (occurrence: None)
  Receive Date: 20060216
  Receipt Date: 20060216
  Transmission Date: 20060701
  Serious: Yes (Hospitalization)
  Sender: FDA-Public Use
  Company Number: None

PATIENT
  Sex: Female
  Weight: 75.2971 kg

DRUGS (5)
  1. PEGASYS [Suspect]
     Indication: HEPATITIS C VIRUS
     Dosage: 180 MCG, Q WEEK, SQ
     Route: 058
     Dates: start: 20051121, end: 20060123
  2. COPEGUS [Suspect]
     Indication: HEPATITIS C VIRUS
     Dosage: 1,000 MG, PO, DAILY
     Route: 048
     Dates: start: 20051121, end: 20060123
  3. METHADONE MAINTENANCE [Concomitant]
  4. ZYPREXA [Concomitant]
  5. PRILOSEC [Concomitant]

REACTIONS (5)
  - DEPENDENCE [None]
  - DEPRESSION [None]
  - DRUG ABUSER [None]
  - MANIA [None]
  - MENTAL STATUS CHANGES [None]
